FAERS Safety Report 20857472 (Version 1)
Quarter: 2022Q2

REPORT INFORMATION
  Report Type: Spontaneous
  Country: US (occurrence: US)
  Receive Date: 20220520
  Receipt Date: 20220520
  Transmission Date: 20220721
  Serious: No
  Sender: FDA-Public Use
  Company Number: US-SANOFI-01105222

PATIENT
  Sex: Female

DRUGS (1)
  1. LANTUS SOLOSTAR [Suspect]
     Active Substance: INSULIN GLARGINE
     Indication: Diabetes mellitus

REACTIONS (6)
  - Memory impairment [Unknown]
  - Blood glucose increased [Unknown]
  - Headache [Unknown]
  - Pain [Unknown]
  - Heart rate increased [Unknown]
  - Device defective [Unknown]
